FAERS Safety Report 21194722 (Version 2)
Quarter: 2022Q3

REPORT INFORMATION
  Report Type: Report from Study
  Country: US (occurrence: US)
  Receive Date: 20220810
  Receipt Date: 20220818
  Transmission Date: 20221027
  Serious: Yes (Hospitalization)
  Sender: FDA-Public Use
  Company Number: US-BAYER-2022A097603

PATIENT
  Age: 90 Year
  Sex: Female

DRUGS (1)
  1. ADEMPAS [Suspect]
     Active Substance: RIOCIGUAT
     Indication: Pulmonary arterial hypertension
     Dosage: 2.5 MG, TID
     Route: 048
     Dates: start: 20210628

REACTIONS (4)
  - Contusion [Recovering/Resolving]
  - Hypotension [Recovered/Resolved]
  - Wound [None]
  - Pain [None]

NARRATIVE: CASE EVENT DATE: 20220101
